FAERS Safety Report 13739076 (Version 1)
Quarter: 2017Q3

REPORT INFORMATION
  Report Type: Spontaneous
  Country: US (occurrence: US)
  Receive Date: 20170710
  Receipt Date: 20170710
  Transmission Date: 20171127
  Serious: Yes (Other)
  Sender: FDA-Public Use
  Company Number: US-SAOL THERAPEUTICS-2017SAO00738

PATIENT
  Age: 80 Year
  Sex: Male

DRUGS (8)
  1. MORPHINE [Suspect]
     Active Substance: MORPHINE
     Dosage: 4.4 MG, \DAY
     Route: 037
  2. COMPOUNDED BACLOFEN [Suspect]
     Active Substance: BACLOFEN
     Indication: PAIN
     Dosage: 146.7 ?G, \DAY
     Route: 037
  3. CLONIDINE. [Suspect]
     Active Substance: CLONIDINE
     Dosage: 665 ?G, \DAY
     Route: 037
  4. MARCAINE [Suspect]
     Active Substance: BUPIVACAINE HYDROCHLORIDE
     Dosage: 8.8 MG, \DAY
     Route: 037
  5. MARCAINE [Suspect]
     Active Substance: BUPIVACAINE HYDROCHLORIDE
     Dosage: 10 MG, \DAY
     Route: 037
  6. MORPHINE [Suspect]
     Active Substance: MORPHINE
     Dosage: 4.99 MG, \DAY
  7. CLONIDINE. [Suspect]
     Active Substance: CLONIDINE
     Dosage: 587 ?G, \DAY
     Route: 037
  8. COMPOUNDED BACLOFEN [Suspect]
     Active Substance: BACLOFEN
     Indication: BACK PAIN
     Dosage: 166 ?G, \DAY

REACTIONS (4)
  - Off label use [Unknown]
  - Mental status changes [Unknown]
  - Somnolence [Unknown]
  - Complication associated with device [Unknown]

NARRATIVE: CASE EVENT DATE: 20170414
